FAERS Safety Report 9471533 (Version 1)
Quarter: 2013Q3

REPORT INFORMATION
  Report Type: Spontaneous
  Country: GB (occurrence: None)
  Receive Date: 20130819
  Receipt Date: 20130819
  Transmission Date: 20140515
  Serious: Yes (Hospitalization)
  Sender: FDA-Public Use
  Company Number: 2013GB0328

PATIENT
  Sex: Male

DRUGS (1)
  1. KINERET [Suspect]
     Dosage: 100 MG (100 MG, 1 IN 1 D)
     Route: 058
     Dates: start: 20120918

REACTIONS (3)
  - Incorrect product storage [None]
  - Condition aggravated [None]
  - Drug ineffective [None]
